FAERS Safety Report 6743631-6 (Version None)
Quarter: 2010Q2

REPORT INFORMATION
  Report Type: 
  Country: None (occurrence: None)
  Receive Date: 20100527
  Receipt Date: 20100521
  Transmission Date: 20101027
  Serious: Yes (Life-Threatening, Hospitalization)
  Sender: FDA-Public Use
  Company Number: CA-ROCHE-705146

PATIENT
  Sex: Female
  Weight: 74 kg

DRUGS (16)
  1. TRASTUZUMAB [Suspect]
     Indication: BREAST CANCER
     Dosage: DOSE LEVEL: 8 MG/KG; FORM: VIALS, LOADING DOSE; FREQUENCY: 1 PER 1 DOSE.
     Route: 042
     Dates: start: 20100412
  2. TRASTUZUMAB [Suspect]
     Dosage: DOSE LEVEL: 6 MG/KG, MAINTANENCE DOSE.
     Route: 042
     Dates: start: 20100504
  3. DOCETAXEL [Suspect]
     Indication: BREAST CANCER
     Dosage: LAST DOSE PRIOR TO SAE: 04 MAY 2010, DOSE LEVEL: 75 MG/M2; FORM: VIALS.
     Route: 042
     Dates: start: 20100412
  4. CARBOPLATIN [Suspect]
     Indication: BREAST CANCER
     Dosage: DOSE LEVEL: 6 AUC, FORM: VIALS, LAST DOSE PRIOR TO SAE: 04 APRIL 2010.
     Route: 042
     Dates: start: 20100412
  5. CIPROFLOXACIN [Concomitant]
     Indication: NEUTROPENIA
     Dates: start: 20100511, end: 20100519
  6. METFORMIN HYDROCHLORIDE [Concomitant]
  7. OLANZAPINE [Concomitant]
  8. RAMIPRIL [Concomitant]
  9. LIPITOR [Concomitant]
  10. EFFEXOR [Concomitant]
  11. DILTIAZEM [Concomitant]
  12. RISPERIDONE [Concomitant]
  13. CLONIDINE [Concomitant]
  14. SEROQUEL [Concomitant]
  15. TRUSOPT [Concomitant]
  16. COMBIGAN [Concomitant]

REACTIONS (1)
  - SYSTEMIC INFLAMMATORY RESPONSE SYNDROME [None]
